FAERS Safety Report 11188758 (Version 2)
Quarter: 2015Q3

REPORT INFORMATION
  Report Type: Spontaneous
  Country: US (occurrence: None)
  Receive Date: 20150611
  Receipt Date: 20150724
  Transmission Date: 20151125
  Serious: Yes (Hospitalization, Other)
  Sender: FDA-Public Use
  Company Number: 2015US0296

PATIENT
  Age: 60 Year
  Sex: Female

DRUGS (6)
  1. GABAPENTIN (GABAPENTIN) [Concomitant]
     Active Substance: GABAPENTIN
  2. CYMBALTA [Concomitant]
     Active Substance: DULOXETINE HYDROCHLORIDE
  3. OXCYCODONE (OXYCODONE) [Concomitant]
  4. PREDNISONE (PREDNISONE) [Concomitant]
     Active Substance: PREDNISONE
  5. KINERET [Suspect]
     Active Substance: ANAKINRA
     Indication: RHEUMATOID ARTHRITIS
     Route: 058
     Dates: start: 20150522
  6. LEVOTHYROXINE (LEVOTHYROXINE) [Concomitant]
     Active Substance: LEVOTHYROXINE

REACTIONS (5)
  - Dyspepsia [None]
  - Diarrhoea [None]
  - Pyrexia [None]
  - Abdominal pain upper [None]
  - Gastroenteritis viral [None]

NARRATIVE: CASE EVENT DATE: 20150526
